FAERS Safety Report 7283021-3 (Version None)
Quarter: 2011Q1

REPORT INFORMATION
  Report Type: 
  Country: None (occurrence: None)
  Receive Date: 20110125
  Receipt Date: 20110110
  Transmission Date: 20110831
  Serious: Yes (Death)
  Sender: FDA-Public Use
  Company Number: 025622

PATIENT
  Sex: Male

DRUGS (4)
  1. ALPRAZOLAM [Suspect]
  2. VENLAFAXINE [Suspect]
     Dosage: EXTENDED RELEASE
  3. MIRTAZAPINE [Suspect]
  4. DILTIAZEM [Suspect]
     Dosage: EXTENDED RELEASE

REACTIONS (3)
  - COMPLETED SUICIDE [None]
  - CARDIAC ARREST [None]
  - RESPIRATORY ARREST [None]
